FAERS Safety Report 23926610 (Version 3)
Quarter: 2025Q2

REPORT INFORMATION
  Report Type: Report from Study
  Country: BR (occurrence: BR)
  Receive Date: 20240531
  Receipt Date: 20250527
  Transmission Date: 20250716
  Serious: Yes (Other)
  Sender: BAYER HEALTHCARE PHARMACEUTICALS INC.
  Company Number: BR-BAYER-2024A062882

PATIENT
  Age: 73 Year
  Sex: Male

DRUGS (2)
  1. NEXAVAR [Suspect]
     Active Substance: SORAFENIB
     Indication: Hepatocellular carcinoma
     Dates: start: 2023
  2. NEXAVAR [Suspect]
     Active Substance: SORAFENIB
     Indication: Hepatic cancer
     Dosage: 400 MG, QD
     Dates: end: 202408

REACTIONS (8)
  - Gait inability [None]
  - Pain [Recovered/Resolved]
  - Blister [Recovered/Resolved]
  - Skin exfoliation [None]
  - Skin exfoliation [None]
  - Blister [Recovered/Resolved]
  - Blister [Recovering/Resolving]
  - Blister [Recovered/Resolved]

NARRATIVE: CASE EVENT DATE: 20240101
